FAERS Safety Report 7873306-1 (Version None)
Quarter: 2011Q4

REPORT INFORMATION
  Report Type: 
  Country: None (occurrence: None)
  Receive Date: 20111012
  Receipt Date: 20101119
  Transmission Date: 20120403
  Serious: Yes (Hospitalization)
  Sender: FDA-Public Use
  Company Number: 2010SP061421

PATIENT
  Age: 69 Year
  Sex: Female

DRUGS (4)
  1. KEPPRA [Concomitant]
  2. TEMODAR [Suspect]
     Indication: GLIOBLASTOMA MULTIFORME
     Dosage: 150 MG; QD; PO, 140 MG; QD; PO
     Route: 048
     Dates: start: 20110104
  3. TEMODAR [Suspect]
     Indication: GLIOBLASTOMA MULTIFORME
     Dosage: 150 MG; QD; PO, 140 MG; QD; PO
     Route: 048
     Dates: start: 20101001, end: 20101116
  4. TEMODAR [Suspect]

REACTIONS (4)
  - PYREXIA [None]
  - ARTHRALGIA [None]
  - CHILLS [None]
  - MALAISE [None]
